FAERS Safety Report 5119054-2 (Version None)
Quarter: 2006Q3

REPORT INFORMATION
  Report Type: 
  Country: None (occurrence: None)
  Receive Date: 20060927
  Receipt Date: 20060918
  Transmission Date: 20061208
  Serious: Yes (Other)
  Sender: FDA-Public Use
  Company Number: 163-20785-06090707

PATIENT
  Sex: 0

DRUGS (6)
  1. THALOMID [Suspect]
     Indication: CARCINOID TUMOUR
     Dosage: 50-400 MG, DAILY, ORAL
     Route: 048
  2. THALOMID [Suspect]
     Indication: NEUROENDOCRINE TUMOUR
     Dosage: 50-400 MG, DAILY, ORAL
     Route: 048
  3. THALOMID [Suspect]
     Indication: PHAEOCHROMOCYTOMA
     Dosage: 50-400 MG, DAILY, ORAL
     Route: 048
  4. TEMOZOLOMIDE (TEMOZOLOMIDE) [Suspect]
     Indication: CARCINOID TUMOUR
     Dosage: 150 MG/M2, FOR 7 DAYS, FOLLOWED BY 7-DAY REST
  5. TEMOZOLOMIDE (TEMOZOLOMIDE) [Suspect]
     Indication: NEUROENDOCRINE TUMOUR
     Dosage: 150 MG/M2, FOR 7 DAYS, FOLLOWED BY 7-DAY REST
  6. TEMOZOLOMIDE (TEMOZOLOMIDE) [Suspect]
     Indication: PHAEOCHROMOCYTOMA
     Dosage: 150 MG/M2, FOR 7 DAYS, FOLLOWED BY 7-DAY REST

REACTIONS (9)
  - BONE MARROW FAILURE [None]
  - GASTROINTESTINAL HYPOMOTILITY [None]
  - LYMPHOPENIA [None]
  - NAUSEA [None]
  - NEUROPATHY [None]
  - OPPORTUNISTIC INFECTION [None]
  - PNEUMOCYSTIS JIROVECI PNEUMONIA [None]
  - SOMNOLENCE [None]
  - THERAPEUTIC RESPONSE DECREASED [None]
